FAERS Safety Report 14031805 (Version 2)
Quarter: 2017Q4

REPORT INFORMATION
  Report Type: Spontaneous
  Country: IE (occurrence: IE)
  Receive Date: 20171002
  Receipt Date: 20171013
  Transmission Date: 20180321
  Serious: Yes (Other)
  Sender: FDA-Public Use
  Company Number: IE-TEVA-808427ACC

PATIENT
  Sex: Male

DRUGS (4)
  1. ORAMOX [Suspect]
     Active Substance: AMOXICILLIN
     Indication: GASTROINTESTINAL INFECTION
     Dosage: 2000 MILLIGRAM DAILY;
     Route: 048
     Dates: start: 20170821, end: 20170904
  2. EMAZOLE [Suspect]
     Active Substance: ESOMEPRAZOLE
     Indication: GASTROINTESTINAL INFECTION
     Dosage: 80 MILLIGRAM DAILY;
     Route: 048
     Dates: start: 20170821, end: 20170904
  3. ASPIRIN (GENERIC) [Concomitant]
     Active Substance: ASPIRIN
     Dosage: 75 MILLIGRAM DAILY;
  4. CLARITHROMYCIN TEVA [Suspect]
     Active Substance: CLARITHROMYCIN
     Indication: GASTROINTESTINAL INFECTION
     Dosage: 1000 MILLIGRAM DAILY;
     Route: 048
     Dates: start: 20170821, end: 20170904

REACTIONS (4)
  - Abnormal dreams [Not Recovered/Not Resolved]
  - Insomnia [Not Recovered/Not Resolved]
  - Palpitations [Not Recovered/Not Resolved]
  - Sleep disorder [Not Recovered/Not Resolved]

NARRATIVE: CASE EVENT DATE: 20170823
